FAERS Safety Report 8709809 (Version 3)
Quarter: 2012Q4

REPORT INFORMATION
  Report Type: 
  Country: US (occurrence: US)
  Receive Date: 20120806
  Receipt Date: 20120904
  Transmission Date: 20130627
  Serious: Yes (Other)
  Sender: FDA-Public Use
  Company Number: US-ELI_LILLY_AND_COMPANY-US201207007753

PATIENT
  Age: 59 None
  Sex: Female

DRUGS (3)
  1. CYMBALTA [Suspect]
     Indication: DEPRESSION
     Dosage: 60mg, daily
     Dates: start: 2006
  2. ESTRADIOL [Concomitant]
  3. SYNTHROID [Concomitant]

REACTIONS (11)
  - Skin exfoliation [Unknown]
  - Blister [Unknown]
  - Pain [Unknown]
  - Intentional drug misuse [Unknown]
  - Cyst [Unknown]
  - Urticaria [Unknown]
  - Sleep disorder [Unknown]
  - Pain in extremity [Unknown]
  - Drug ineffective [Unknown]
  - Fatigue [Unknown]
  - Apathy [Unknown]
